FAERS Safety Report 16563433 (Version 2)
Quarter: 2019Q3

REPORT INFORMATION
  Report Type: Report from Study
  Country: None (occurrence: US)
  Receive Date: 20190712
  Receipt Date: 20190913
  Transmission Date: 20191004
  Serious: Yes (Hospitalization, Other)
  Sender: FDA-Public Use
  Company Number: US-ABBVIE-19K-163-2781360-00

PATIENT
  Age: 74 Year
  Sex: Female
  Weight: 68.1 kg

DRUGS (2)
  1. HUMIRA [Suspect]
     Active Substance: ADALIMUMAB
     Indication: RHEUMATOID ARTHRITIS
     Dosage: CITRATE FREE
     Route: 058
     Dates: start: 2016, end: 201902
  2. HUMIRA [Suspect]
     Active Substance: ADALIMUMAB
     Dosage: CITRATE FREE
     Route: 058
     Dates: start: 201905

REACTIONS (14)
  - Tooth abscess [Recovered/Resolved]
  - Post procedural complication [Recovering/Resolving]
  - Muscular weakness [Recovering/Resolving]
  - Hypoaesthesia [Recovering/Resolving]
  - Spinal laminectomy [Recovered/Resolved]
  - Neck surgery [Recovering/Resolving]
  - Musculoskeletal disorder [Recovering/Resolving]
  - Urinary tract infection [Recovered/Resolved]
  - Gait inability [Recovering/Resolving]
  - Urinary tract infection [Recovered/Resolved]
  - Tooth abscess [Recovered/Resolved]
  - Musculoskeletal disorder [Recovered/Resolved]
  - Back disorder [Recovering/Resolving]
  - Peripheral swelling [Recovering/Resolving]

NARRATIVE: CASE EVENT DATE: 2019
